FAERS Safety Report 5178192-9 (Version None)
Quarter: 2006Q4

REPORT INFORMATION
  Report Type: 
  Country: None (occurrence: None)
  Receive Date: 20061218
  Receipt Date: 20060808
  Transmission Date: 20070319
  Serious: No
  Sender: FDA-Public Use
  Company Number: US-AMGEN-KDL189402

PATIENT
  Sex: Male

DRUGS (3)
  1. ENBREL [Suspect]
     Indication: PSORIATIC ARTHROPATHY
     Route: 058
     Dates: start: 20060228
  2. ENBREL [Suspect]
     Indication: PSORIASIS
  3. METHOTREXATE [Concomitant]
     Dates: start: 20051001

REACTIONS (6)
  - ASTHENIA [None]
  - CONDITION AGGRAVATED [None]
  - INCREASED UPPER AIRWAY SECRETION [None]
  - PSORIASIS [None]
  - PSORIATIC ARTHROPATHY [None]
  - RESPIRATORY TRACT INFECTION [None]
